FAERS Safety Report 12965327 (Version 1)
Quarter: 2016Q4

REPORT INFORMATION
  Report Type: Spontaneous
  Country: FI (occurrence: FI)
  Receive Date: 20161122
  Receipt Date: 20161122
  Transmission Date: 20170207
  Serious: Yes (Hospitalization)
  Sender: FDA-Public Use
  Company Number: FI-B.I. PHARMACEUTICALS,INC./RIDGEFIELD-2016-BI-077998

PATIENT
  Age: 70 Year
  Sex: Male

DRUGS (3)
  1. BISOPROLOL ACTAVIS [Suspect]
     Active Substance: BISOPROLOL
     Indication: HEART RATE
     Route: 048
     Dates: start: 2006, end: 20160415
  2. PRADAXA [Suspect]
     Active Substance: DABIGATRAN ETEXILATE MESYLATE
     Indication: ATRIAL FIBRILLATION
     Route: 048
     Dates: start: 20150524, end: 20160615
  3. ATENOLOL. [Suspect]
     Active Substance: ATENOLOL
     Indication: HEART RATE
     Route: 065

REACTIONS (6)
  - Sputum increased [Recovering/Resolving]
  - Dyspnoea exertional [Recovering/Resolving]
  - Stridor [Recovering/Resolving]
  - Suffocation feeling [Recovering/Resolving]
  - Pneumonitis [Recovering/Resolving]
  - Poor quality sleep [Recovering/Resolving]

NARRATIVE: CASE EVENT DATE: 20150715
